FAERS Safety Report 11576056 (Version 2)
Quarter: 2016Q3

REPORT INFORMATION
  Report Type: Spontaneous
  Country: US (occurrence: US)
  Receive Date: 20150930
  Receipt Date: 20160906
  Transmission Date: 20161109
  Serious: Yes (Death, Hospitalization)
  Sender: FDA-Public Use
  Company Number: US-WEST-WARD PHARMACEUTICALS CORP.-US-H14001-15-01739

PATIENT
  Age: 88 Year
  Sex: Female

DRUGS (6)
  1. HALOPERIDOL. [Suspect]
     Active Substance: HALOPERIDOL
     Indication: CONFUSIONAL STATE
  2. LORAZEPAM. [Suspect]
     Active Substance: LORAZEPAM
     Indication: CONFUSIONAL STATE
     Route: 065
  3. LORAZEPAM. [Suspect]
     Active Substance: LORAZEPAM
     Indication: AGITATION
  4. HALOPERIDOL. [Suspect]
     Active Substance: HALOPERIDOL
     Indication: AGITATION
     Route: 065
  5. MEMANTINE HYDROCHLORIDE. [Suspect]
     Active Substance: MEMANTINE HYDROCHLORIDE
     Indication: AGITATION
     Route: 065
  6. MEMANTINE HYDROCHLORIDE. [Suspect]
     Active Substance: MEMANTINE HYDROCHLORIDE
     Indication: CONFUSIONAL STATE

REACTIONS (4)
  - Malnutrition [Unknown]
  - Nosocomial infection [Fatal]
  - Condition aggravated [Unknown]
  - Delirium [Unknown]
